FAERS Safety Report 25278564 (Version 1)
Quarter: 2025Q2

REPORT INFORMATION
  Report Type: Spontaneous
  Country: US (occurrence: US)
  Receive Date: 20250507
  Receipt Date: 20250507
  Transmission Date: 20250717
  Serious: Yes (Life-Threatening)
  Sender: PFIZER
  Company Number: US-PFIZER INC-0006188401PHAMED

PATIENT
  Age: 34 Year
  Sex: Male

DRUGS (14)
  1. METHYLPREDNISOLONE SODIUM SUCCINATE [Suspect]
     Active Substance: METHYLPREDNISOLONE SODIUM SUCCINATE
     Indication: Asthmatic crisis
     Dosage: 60 MG, EVERY 6 H
     Route: 042
  2. METHYLPREDNISOLONE SODIUM SUCCINATE [Suspect]
     Active Substance: METHYLPREDNISOLONE SODIUM SUCCINATE
     Dosage: 60 MG, EVERY 6 H
     Route: 042
  3. METHYLPREDNISOLONE SODIUM SUCCINATE [Suspect]
     Active Substance: METHYLPREDNISOLONE SODIUM SUCCINATE
     Dosage: 750 MG, DAILY
     Route: 042
  4. PANCURONIUM [Suspect]
     Active Substance: PANCURONIUM
     Route: 040
  5. PANCURONIUM [Suspect]
     Active Substance: PANCURONIUM
     Route: 040
  6. VECURONIUM [Suspect]
     Active Substance: VECURONIUM BROMIDE
  7. PREDNISONE [Concomitant]
     Active Substance: PREDNISONE
     Dosage: 40 MG, ONCE DAILY
     Route: 048
  8. PREDNISONE [Concomitant]
     Active Substance: PREDNISONE
     Dosage: SLOWLY TAPERED TO 20 MG ONCE DAILY
     Route: 048
  9. MIDAZOLAM [Concomitant]
     Active Substance: MIDAZOLAM
     Indication: Sedation
  10. ALBUTEROL [Concomitant]
     Active Substance: ALBUTEROL
  11. AMINOPHYLLINE [Concomitant]
     Active Substance: AMINOPHYLLINE
     Route: 042
  12. ERYTHROMYCIN [Concomitant]
     Active Substance: ERYTHROMYCIN
  13. CEFTAZIDIME [Concomitant]
     Active Substance: CEFTAZIDIME
  14. ISOFLURANE [Concomitant]
     Active Substance: ISOFLURANE
     Indication: Bronchospasm
     Route: 055

REACTIONS (1)
  - Myopathy [Recovering/Resolving]
